FAERS Safety Report 7206896-2 (Version None)
Quarter: 2010Q4

REPORT INFORMATION
  Report Type: 
  Country: None (occurrence: None)
  Receive Date: 20101230
  Receipt Date: 20101230
  Transmission Date: 20110411
  Serious: Yes (Hospitalization)
  Sender: FDA-Public Use
  Company Number: None

PATIENT
  Age: 63 Year
  Sex: Male
  Weight: 90 kg

DRUGS (1)
  1. TERAZOSIN HCL [Suspect]
     Indication: PROSTATISM
     Dosage: 2 MG EVERY DAY PO
     Route: 048
     Dates: start: 20101118, end: 20101217

REACTIONS (1)
  - ORTHOSTATIC HYPOTENSION [None]
